FAERS Safety Report 5168079-X (Version None)
Quarter: 2006Q4

REPORT INFORMATION
  Report Type: 
  Country: None (occurrence: None)
  Receive Date: 20061208
  Receipt Date: 20060918
  Transmission Date: 20070319
  Serious: No
  Sender: FDA-Public Use
  Company Number: 312713

PATIENT
  Age: 74 Year
  Sex: Male
  Weight: 84.5 kg

DRUGS (6)
  1. AVANDAMET [Suspect]
     Route: 048
     Dates: start: 20060901
  2. ZOLOFT [Concomitant]
     Indication: DEPRESSION
     Dosage: 50MG AT NIGHT
     Route: 048
  3. DOXAZOSIN MESYLATE [Concomitant]
     Dosage: 4MG AT NIGHT
     Route: 048
  4. PRILOSEC [Concomitant]
     Dosage: 20MG PER DAY
     Route: 048
  5. LIPITOR [Concomitant]
     Dosage: 20MG PER DAY
     Route: 048
  6. ENALAPRIL MALEATE [Concomitant]
     Dosage: 2.5MG PER DAY
     Route: 048
     Dates: start: 20060901

REACTIONS (1)
  - INSOMNIA [None]
